FAERS Safety Report 19011340 (Version 12)
Quarter: 2023Q1

REPORT INFORMATION
  Report Type: Report from Study
  Country: GB (occurrence: GB)
  Receive Date: 20210315
  Receipt Date: 20230111
  Transmission Date: 20230418
  Serious: Yes (Hospitalization, Other)
  Sender: FDA-Public Use
  Company Number: GB-ROCHE-2695758

PATIENT
  Age: 43 Year
  Sex: Female

DRUGS (44)
  1. DOCETAXEL [Suspect]
     Active Substance: DOCETAXEL
     Indication: Breast cancer metastatic
     Dosage: 148 MILLIGRAM, Q3W
     Route: 042
     Dates: start: 20171108, end: 20180131
  2. DOCETAXEL [Suspect]
     Active Substance: DOCETAXEL
     Indication: Cancer pain
  3. TRASTUZUMAB [Suspect]
     Active Substance: TRASTUZUMAB
     Indication: Breast cancer metastatic
     Dosage: 8 MILLIGRAM, Q3W
     Route: 042
     Dates: start: 20171108
  4. TRASTUZUMAB [Suspect]
     Active Substance: TRASTUZUMAB
     Indication: Cancer pain
     Dosage: 651 MILLIGRAM, Q3W
     Route: 042
     Dates: start: 20171129, end: 20210903
  5. TRASTUZUMAB [Suspect]
     Active Substance: TRASTUZUMAB
     Dosage: 882 MILLIGRAM, Q3W
     Route: 042
     Dates: start: 20171108, end: 20171129
  6. PERTUZUMAB [Suspect]
     Active Substance: PERTUZUMAB
     Indication: Breast cancer metastatic
     Dosage: 840 MILLIGRAM, Q3W
     Route: 042
     Dates: start: 20171108, end: 20171129
  7. PERTUZUMAB [Suspect]
     Active Substance: PERTUZUMAB
     Indication: Cancer pain
     Dosage: 840 MILLIGRAM, Q3W
     Route: 042
     Dates: start: 20181120
  8. PERTUZUMAB [Suspect]
     Active Substance: PERTUZUMAB
     Dosage: 420 MILLIGRAM, Q3W
     Route: 042
     Dates: start: 20171129, end: 20210924
  9. NITROFURANTOIN [Concomitant]
     Active Substance: NITROFURANTOIN
     Indication: Urinary tract infection
     Dosage: 50 MILLIGRAM, QD, START 03-NOV-2018
     Route: 048
     Dates: start: 20181103, end: 20181109
  10. NITROFURANTOIN [Concomitant]
     Active Substance: NITROFURANTOIN
     Indication: Cancer pain
     Dosage: 50 MILLIGRAM, QID, START 03-NOV-2018
     Route: 048
     Dates: end: 20181109
  11. RAMIPRIL [Concomitant]
     Active Substance: RAMIPRIL
     Indication: Cancer pain
     Dosage: 1.25 MILLIGRAM, QD
     Route: 048
  12. OMEPRAZOLE [Concomitant]
     Active Substance: OMEPRAZOLE
     Indication: Cancer pain
     Dosage: 40 MILLIGRAM, QD
     Route: 048
     Dates: start: 201710
  13. CLONAZEPAM [Concomitant]
     Active Substance: CLONAZEPAM
     Indication: Muscle spasms
     Dosage: 250 MILLIGRAM, QD, START 2020
     Route: 048
  14. CLONAZEPAM [Concomitant]
     Active Substance: CLONAZEPAM
     Dosage: 250 MILLIGRAM, QD, START JUN-2020
     Route: 048
     Dates: start: 202006
  15. SIMVASTATIN [Concomitant]
     Active Substance: SIMVASTATIN
     Indication: Cancer pain
     Dosage: 40 MILLIGRAM, QD
     Route: 048
  16. QUETIAPINE [Concomitant]
     Active Substance: QUETIAPINE
     Indication: Depressed mood
     Dosage: 100 MILLIGRAM, QD, START 2020
     Route: 048
     Dates: start: 2020
  17. QUETIAPINE [Concomitant]
     Active Substance: QUETIAPINE
     Indication: Cancer pain
     Dosage: 1 DOSAGE FORM, START 2020
     Route: 048
  18. QUETIAPINE [Concomitant]
     Active Substance: QUETIAPINE
     Dosage: 150 MILLIGRAM, QD, START 2020
     Route: 048
     Dates: start: 2020
  19. QUETIAPINE [Concomitant]
     Active Substance: QUETIAPINE
     Dosage: 100 MILLIGRAM, QD
     Route: 048
     Dates: end: 2020
  20. MORPHINE [Concomitant]
     Active Substance: MORPHINE
     Indication: Vomiting
     Dosage: 5 MILLIGRAM, QD, START 02-OCT-2018
     Route: 042
     Dates: start: 20181002, end: 20181002
  21. MORPHINE [Concomitant]
     Active Substance: MORPHINE
     Indication: Diarrhoea
     Dosage: UNK
     Route: 065
  22. ALBUTEROL [Concomitant]
     Active Substance: ALBUTEROL
     Indication: Cancer pain
     Dosage: 1 DOSAGE FORM, PRN, DOSE 2 PUFF
     Route: 055
  23. ALBUTEROL [Concomitant]
     Active Substance: ALBUTEROL
     Dosage: 2 PUFF
     Route: 065
  24. LACTULOSE [Concomitant]
     Active Substance: LACTULOSE
     Indication: Constipation prophylaxis
     Dosage: 10 MILLILITER, BID
     Route: 048
  25. METFORMIN [Concomitant]
     Active Substance: METFORMIN HYDROCHLORIDE
     Indication: Cancer pain
     Dosage: 1000 MILLIGRAM, QD
     Route: 048
  26. METFORMIN [Concomitant]
     Active Substance: METFORMIN HYDROCHLORIDE
     Dosage: 500 MILLIGRAM, QD
     Route: 048
  27. METFORMIN [Concomitant]
     Active Substance: METFORMIN HYDROCHLORIDE
     Dosage: 1000 MILLIGRAM, QD
     Route: 065
  28. MIRTAZAPINE [Concomitant]
     Active Substance: MIRTAZAPINE
     Indication: Cancer pain
     Dosage: 45 MILLIGRAM, QD
     Route: 048
  29. ONDANSETRON [Concomitant]
     Active Substance: ONDANSETRON
     Indication: Vomiting
     Dosage: 4 MILLIGRAM, QD, START 02-OCT-2018
     Route: 042
     Dates: start: 20181002, end: 20181002
  30. ONDANSETRON [Concomitant]
     Active Substance: ONDANSETRON
     Indication: Diarrhoea
     Dosage: UNK
     Route: 065
  31. OXYCODONE [Concomitant]
     Active Substance: OXYCODONE
     Indication: Cancer pain
     Dosage: 110 MILLIGRAM, BID
     Route: 048
  32. OXYCODONE [Concomitant]
     Active Substance: OXYCODONE
     Indication: Pain
  33. Calcium carbonate;Colecalciferol;Copper;Magnesium carbonate;Magnesium [Concomitant]
     Indication: Cancer pain
     Dosage: 1 DOSAGE FORM, BID
     Route: 048
  34. SODIUM PICOSULFATE [Concomitant]
     Active Substance: SODIUM PICOSULFATE
     Indication: Constipation
     Dosage: QD (DOSE 10 OTHER (10 MG IN 10 ML))
     Route: 048
  35. SODIUM PICOSULFATE [Concomitant]
     Active Substance: SODIUM PICOSULFATE
     Indication: Cancer pain
  36. BECLOMETHASONE DIPROPIONATE [Concomitant]
     Active Substance: BECLOMETHASONE DIPROPIONATE
     Indication: Cancer pain
     Dosage: 2 DOSAGE FORM, QD, DOSE 2 PUFF, 0.5 DAY
     Route: 055
  37. BECLOMETHASONE DIPROPIONATE [Concomitant]
     Active Substance: BECLOMETHASONE DIPROPIONATE
     Dosage: DOSE 2 PUFF
     Route: 055
  38. LINEZOLID [Concomitant]
     Active Substance: LINEZOLID
     Indication: Vascular device infection
     Dosage: 600 MILLIGRAM, BID, START 25-NOV-2019
     Route: 048
     Dates: start: 20191125, end: 20191130
  39. LINEZOLID [Concomitant]
     Active Substance: LINEZOLID
     Indication: Device related infection
  40. LINEZOLID [Concomitant]
     Active Substance: LINEZOLID
     Indication: Cancer pain
  41. CALCIUM CARBONATE [Concomitant]
     Active Substance: CALCIUM CARBONATE
     Dosage: 1 DOSAGE FORM, BID (1,5G + 400 UNITS)
     Route: 048
  42. BECLOMETHASONE DIPROPIONATE [Concomitant]
     Active Substance: BECLOMETHASONE DIPROPIONATE
     Dosage: UNK, BID (2 PUFF)
     Route: 065
  43. ERYTHROMYCIN [Concomitant]
     Active Substance: ERYTHROMYCIN
     Indication: Vascular device infection
     Dosage: 500 MILLIGRAM, QID, START 2020
     Route: 048
     Dates: start: 2020, end: 202007
  44. VANCOMYCIN [Concomitant]
     Active Substance: VANCOMYCIN
     Indication: Vascular device infection
     Dosage: 1750 MILLIGRAM, BID, START 12-JUN-2020
     Route: 042
     Dates: end: 202006

REACTIONS (10)
  - Appendicitis [Recovered/Resolved]
  - Device related infection [Recovered/Resolved]
  - Vascular device infection [Recovered/Resolved]
  - Abdominal rigidity [Recovered/Resolved with Sequelae]
  - Muscle spasms [Recovered/Resolved with Sequelae]
  - Diarrhoea [Recovered/Resolved]
  - Vomiting [Recovered/Resolved]
  - Abdominal pain [Recovered/Resolved]
  - COVID-19 [Recovered/Resolved with Sequelae]
  - Asthma [Recovered/Resolved]

NARRATIVE: CASE EVENT DATE: 20181001
